FAERS Safety Report 9863645 (Version 1)
Quarter: 2014Q1

REPORT INFORMATION
  Report Type: Spontaneous
  Country: US (occurrence: US)
  Receive Date: 20140203
  Receipt Date: 20140203
  Transmission Date: 20141002
  Serious: Yes (Other)
  Sender: FDA-Public Use
  Company Number: US-BAYER-2014-016673

PATIENT
  Age: 17 Year
  Sex: Male
  Weight: 98 kg

DRUGS (3)
  1. ALEVE CAPLET [Suspect]
     Indication: SUICIDE ATTEMPT
     Dosage: 40 DF, ONCE
     Route: 048
     Dates: start: 20140129, end: 20140129
  2. ZOLOFT [Concomitant]
  3. ZOLOFT [Concomitant]
     Dosage: 40 DF, ONCE
     Route: 048

REACTIONS (4)
  - Suicide attempt [None]
  - Intentional overdose [None]
  - Vomiting [None]
  - Abdominal pain [Not Recovered/Not Resolved]
